FAERS Safety Report 6492073-X (Version None)
Quarter: 2009Q4

REPORT INFORMATION
  Report Type: 
  Country: None (occurrence: None)
  Receive Date: 20091125
  Receipt Date: 20090611
  Transmission Date: 20100525
  Serious: Yes (Hospitalization)
  Sender: FDA-Public Use
  Company Number: 2009BH009844

PATIENT
  Age: 53 Year
  Sex: Female

DRUGS (18)
  1. DIANEAL [Suspect]
     Indication: PERITONEAL DIALYSIS
     Dosage: IP
     Route: 033
     Dates: start: 20050622
  2. DIANEAL [Suspect]
     Indication: PERITONEAL DIALYSIS
     Dosage: IP
     Route: 033
     Dates: start: 20050622
  3. HEPARIN [Concomitant]
  4. AMBIEN [Concomitant]
  5. ASPIRIN [Concomitant]
  6. MUPIROCIN [Concomitant]
  7. DIPHENHYDRAMINE HCL [Concomitant]
  8. WARFARIN SODIUM [Concomitant]
  9. EPOGEN [Concomitant]
  10. ERGOCALCIFEROL [Concomitant]
  11. INSULIN [Concomitant]
  12. FERRITIN [Concomitant]
  13. ESOMEPRAZOLE SODIUM (NEXIUM) [Concomitant]
  14. OXYCODONE [Concomitant]
  15. PHOSLO [Concomitant]
  16. REGLAN [Concomitant]
  17. SYNTHROID [Concomitant]
  18. XANAX [Concomitant]

REACTIONS (2)
  - MEDICAL DEVICE COMPLICATION [None]
  - PERITONITIS [None]
